FAERS Safety Report 8256202-X (Version None)
Quarter: 2012Q2

REPORT INFORMATION
  Report Type: 
  Country: None (occurrence: None)
  Receive Date: 20120403
  Receipt Date: 20120320
  Transmission Date: 20120825
  Serious: Yes (Hospitalization)
  Sender: FDA-Public Use
  Company Number: IT-ROCHE-802007

PATIENT
  Sex: Female
  Weight: 60 kg

DRUGS (2)
  1. PEGINTERFERON ALFA-2A [Suspect]
     Indication: HEPATITIS C
     Dosage: DOSE : 180
     Route: 058
     Dates: start: 20101209, end: 20110303
  2. COPEGUS [Suspect]
     Indication: HEPATITIS C
     Dosage: DAILY
     Route: 048
     Dates: start: 20101209, end: 20110303

REACTIONS (2)
  - ALCOHOL ABUSE [None]
  - PSYCHOTIC DISORDER [None]
